FAERS Safety Report 6800112-9 (Version None)
Quarter: 2010Q2

REPORT INFORMATION
  Report Type: 
  Country: None (occurrence: None)
  Receive Date: 20100617
  Receipt Date: 20100610
  Transmission Date: 20101027
  Serious: Yes (Hospitalization)
  Sender: FDA-Public Use
  Company Number: 2010SP032878

PATIENT
  Sex: Female

DRUGS (2)
  1. SAPHRIS [Suspect]
     Indication: SCHIZOPHRENIA
     Dosage: 10 ML;BID;SL
     Route: 060
  2. HALDOL [Concomitant]

REACTIONS (2)
  - HALLUCINATION, AUDITORY [None]
  - VIOLENCE-RELATED SYMPTOM [None]
